FAERS Safety Report 10921506 (Version 1)
Quarter: 2015Q1

REPORT INFORMATION
  Report Type: Spontaneous
  Country: ES (occurrence: None)
  Receive Date: 20150312
  Receipt Date: 20150312
  Transmission Date: 20150721
  Serious: Yes (Hospitalization)
  Sender: FDA-Public Use
  Company Number: 2272221

PATIENT
  Age: 68 Year
  Sex: Male

DRUGS (7)
  1. RALTITREXED DISODIUM [Suspect]
     Active Substance: RALTITREXED
     Indication: ADENOCARCINOMA
     Dosage: 3 MG/M 2 MILLIGRAM(S)/SQ. METER (1 DAY), UNKNOWN
     Dates: start: 20130318
  2. ORAL ANTIDIABETICS [Concomitant]
     Active Substance: UNSPECIFIED INGREDIENT
  3. OXALIPLATIN. [Suspect]
     Active Substance: OXALIPLATIN
     Indication: ADENOCARCINOMA
     Dates: start: 20130218
  4. FOLINIC ACID [Suspect]
     Active Substance: LEUCOVORIN
     Indication: ADENOCARCINOMA
     Dates: start: 20130218
  5. BEVACIZUMAB [Suspect]
     Active Substance: BEVACIZUMAB
     Indication: ADENOCARCINOMA
     Dates: start: 20130218
  6. ATORVASTATIN [Concomitant]
     Active Substance: ATORVASTATIN
  7. 5-FLUOROURACIL [Suspect]
     Active Substance: FLUOROURACIL
     Indication: ADENOCARCINOMA

REACTIONS (4)
  - Neurotoxicity [None]
  - Asthenia [None]
  - Nausea [None]
  - Arteriospasm coronary [None]

NARRATIVE: CASE EVENT DATE: 20130219
